FAERS Safety Report 8252957-9 (Version None)
Quarter: 2012Q2

REPORT INFORMATION
  Report Type: 
  Country: None (occurrence: None)
  Receive Date: 20120402
  Receipt Date: 20120223
  Transmission Date: 20120825
  Serious: No
  Sender: FDA-Public Use
  Company Number: US-ABBOTT-12P-163-0908332-00

PATIENT
  Age: 41 Year
  Sex: Female

DRUGS (3)
  1. ANDROGEL [Suspect]
     Indication: LIBIDO DISORDER
     Dosage: UNKNOWN DOSE
     Dates: start: 20090101
  2. UNKNOWN THYROID MEDICATION [Concomitant]
     Indication: THYROID DISORDER
  3. HORMONES [Concomitant]
     Indication: PRODUCT USED FOR UNKNOWN INDICATION

REACTIONS (2)
  - OFF LABEL USE [None]
  - MEDICATION ERROR [None]
